FAERS Safety Report 6170261-X (Version None)
Quarter: 2009Q2

REPORT INFORMATION
  Report Type: 
  Country: None (occurrence: None)
  Receive Date: 20090428
  Receipt Date: 20090421
  Transmission Date: 20091009
  Serious: Yes (Hospitalization)
  Sender: FDA-Public Use
  Company Number: US-ASTRAZENECA-2009UW09985

PATIENT
  Sex: Male
  Weight: 91.6 kg

DRUGS (10)
  1. PULMICORT FLEXHALER [Suspect]
     Indication: ASTHMA
     Route: 055
  2. PULMICORT FLEXHALER [Suspect]
     Indication: CHRONIC OBSTRUCTIVE PULMONARY DISEASE
     Route: 055
  3. COUMADIN [Concomitant]
  4. FUROSEMIDE [Concomitant]
  5. POTASSIUM CHLORIDE [Concomitant]
  6. MAGNESIUM SULFATE [Concomitant]
  7. COMBIVENT [Concomitant]
  8. ALBUTEROL [Concomitant]
     Route: 065
  9. KLONOPIN [Concomitant]
  10. ASPIRIN [Concomitant]

REACTIONS (1)
  - DYSPNOEA [None]
